FAERS Safety Report 8203680-8 (Version None)
Quarter: 2012Q1

REPORT INFORMATION
  Report Type: 
  Country: None (occurrence: None)
  Receive Date: 20120308
  Receipt Date: 20120227
  Transmission Date: 20120608
  Serious: Yes (Hospitalization)
  Sender: FDA-Public Use
  Company Number: 2012000023

PATIENT
  Age: 83 Year
  Sex: Female

DRUGS (12)
  1. ACEON [Suspect]
     Indication: HYPERTENSION
     Dosage: 5 MG, QD, ORAL
     Route: 048
     Dates: end: 20111121
  2. NEXIUM [Suspect]
     Indication: PRODUCT USED FOR UNKNOWN INDICATION
     Dosage: 20 MG, QD, ORAL
     Route: 048
  3. LERCANIDIPINE [Suspect]
     Indication: HYPERTENSION
     Dosage: 5 MG, QD, ORAL
     Route: 048
  4. FORLAX (MACROGOL) [Suspect]
     Indication: PRODUCT USED FOR UNKNOWN INDICATION
     Dosage: 1 DF, QD, ORAL
     Route: 048
  5. DICLOFENAC SODIUM [Suspect]
     Indication: BACK PAIN
     Dosage: 50 MG, TID, ORAL
     Route: 048
     Dates: start: 20111118, end: 20111121
  6. AMIODARONE HCL [Suspect]
     Indication: ATRIAL FIBRILLATION
     Dosage: 1 DF, 5 DAYS/WEEK, ORAL
     Route: 048
     Dates: end: 20111126
  7. IRBESARTAN [Suspect]
     Indication: HYPERTENSION
     Dosage: 150 MG, QD, ORAL
     Route: 048
     Dates: end: 20111121
  8. ESIDRIX [Suspect]
     Indication: HYPERTENSION
     Dosage: 12.5 MG, QD, ORAL
     Route: 048
     Dates: end: 20111121
  9. COLTRAMYL (THIOCOLCHICOSIDE) [Suspect]
     Indication: BACK PAIN
     Dosage: 1 DF, TID, ORAL
     Route: 048
     Dates: start: 20111118, end: 20111121
  10. OMEPRAZOLE [Suspect]
     Indication: BACK PAIN
     Dosage: 20 MG, QD, ORAL
     Route: 048
     Dates: start: 20111118, end: 20111121
  11. ACETAMINOPHEN [Suspect]
     Indication: BACK PAIN
     Dosage: PRN, ORAL
     Route: 048
     Dates: start: 20111128
  12. ASPIRIN [Suspect]
     Indication: PRODUCT USED FOR UNKNOWN INDICATION
     Dosage: 75 MG, QD, ORAL
     Route: 048

REACTIONS (11)
  - DRUG INTERACTION [None]
  - DIARRHOEA [None]
  - DEHYDRATION [None]
  - BLOOD ALKALINE PHOSPHATASE INCREASED [None]
  - NAUSEA [None]
  - GAMMA-GLUTAMYLTRANSFERASE INCREASED [None]
  - VOMITING [None]
  - BACK PAIN [None]
  - RENAL FAILURE ACUTE [None]
  - BLOOD GLUCOSE INCREASED [None]
  - DECREASED APPETITE [None]
